FAERS Safety Report 7932452-4 (Version None)
Quarter: 2011Q4

REPORT INFORMATION
  Report Type: 
  Country: None (occurrence: None)
  Receive Date: 20111122
  Receipt Date: 20111116
  Transmission Date: 20120403
  Serious: Yes (Hospitalization)
  Sender: FDA-Public Use
  Company Number: US-BIOGENIDEC-2011BI043874

PATIENT
  Age: 42 Year
  Sex: Female

DRUGS (2)
  1. AVONEX [Suspect]
     Indication: MULTIPLE SCLEROSIS
     Route: 030
     Dates: start: 20081114, end: 20110401
  2. AVONEX [Suspect]
     Route: 030
     Dates: start: 20111007

REACTIONS (3)
  - DEHYDRATION [None]
  - CONSTIPATION [None]
  - SKIN INFECTION [None]
